FAERS Safety Report 12210717 (Version 1)
Quarter: 2016Q1

REPORT INFORMATION
  Report Type: Spontaneous
  Country: US (occurrence: US)
  Receive Date: 20160325
  Receipt Date: 20160325
  Transmission Date: 20160526
  Serious: No
  Sender: FDA-Public Use
  Company Number: US-MALLINCKRODT-T201504447

PATIENT
  Sex: Male

DRUGS (1)
  1. METHADOSE DISPERSIBLE [Suspect]
     Active Substance: METHADONE HYDROCHLORIDE
     Indication: PRODUCT USED FOR UNKNOWN INDICATION
     Route: 065

REACTIONS (2)
  - Malaise [Unknown]
  - Product preparation error [Unknown]
